FAERS Safety Report 15494903 (Version 1)
Quarter: 2018Q4

REPORT INFORMATION
  Report Type: Report from Study
  Country: None (occurrence: IL)
  Receive Date: 20181012
  Receipt Date: 20181012
  Transmission Date: 20190205
  Serious: Yes (Other)
  Sender: FDA-Public Use
  Company Number: IL-ABBVIE-18S-082-2516696-00

PATIENT
  Sex: Male

DRUGS (1)
  1. DUODOPA [Suspect]
     Active Substance: CARBIDOPA\LEVODOPA
     Indication: PARKINSON^S DISEASE
     Dosage: CURRENT MD- 7.7 ML, CURRENT FR- 2.4 ML/ HOUR, CURRENT ED- 1.5 ML
     Route: 050
     Dates: start: 20160924

REACTIONS (1)
  - Neoplasm malignant [Unknown]
